FAERS Safety Report 7065384-7 (Version None)
Quarter: 2010Q4

REPORT INFORMATION
  Report Type: 
  Country: None (occurrence: None)
  Receive Date: 20101027
  Receipt Date: 20101020
  Transmission Date: 20110411
  Serious: Yes (Hospitalization)
  Sender: FDA-Public Use
  Company Number: JP-BAXTER-2010BH025917

PATIENT
  Age: 65 Year
  Sex: Female

DRUGS (15)
  1. CYCLOPHOSPHAMIDE [Suspect]
     Indication: BREAST CANCER RECURRENT
     Route: 065
     Dates: start: 20100824, end: 20100101
  2. EPIRUBICIN HYDROCHLORIDE [Suspect]
     Indication: BREAST CANCER RECURRENT
     Route: 042
     Dates: start: 20100824
  3. DICLOFENAC SODIUM [Suspect]
     Indication: BREAST CANCER RECURRENT
     Route: 048
  4. CIPROFLOXACIN HCL [Suspect]
     Indication: PYREXIA
     Route: 048
     Dates: start: 20100907, end: 20100910
  5. GASTER D [Concomitant]
     Indication: GASTRITIS
     Route: 048
  6. URSO 250 [Concomitant]
     Indication: HEPATIC FUNCTION ABNORMAL
     Route: 048
  7. CYANOCOBALAMIN [Concomitant]
     Indication: NEUROPATHY PERIPHERAL
     Route: 048
  8. GOSHAJINKIGAN [Concomitant]
     Indication: NEUROPATHY PERIPHERAL
     Route: 048
  9. HYDROCHLOROTHIAZIDE W/VALSARTAN [Concomitant]
     Indication: HYPERTENSION
     Route: 048
  10. METFORMIN HCL [Concomitant]
     Indication: DIABETES MELLITUS
     Route: 048
  11. AMARYL [Concomitant]
     Indication: DIABETES MELLITUS
     Route: 048
  12. AMLODIPINE [Concomitant]
     Indication: HYPERTENSION
     Route: 048
  13. PIOGLITAZONE HCL [Concomitant]
     Indication: DIABETES MELLITUS
     Route: 048
  14. MYSLEE [Concomitant]
     Indication: INSOMNIA
     Route: 048
  15. WARFARIN SODIUM [Concomitant]
     Indication: THROMBOSIS
     Route: 048

REACTIONS (1)
  - RENAL FAILURE ACUTE [None]
